FAERS Safety Report 21966039 (Version 4)
Quarter: 2023Q2

REPORT INFORMATION
  Report Type: Spontaneous
  Country: DE (occurrence: DE)
  Receive Date: 20230208
  Receipt Date: 20230526
  Transmission Date: 20230722
  Serious: Yes (Life-Threatening, Hospitalization, Other)
  Sender: FDA-Public Use
  Company Number: DE-002147023-NVSC2022DE264377

PATIENT
  Age: 14 Year

DRUGS (7)
  1. ARIPIPRAZOLE [Suspect]
     Active Substance: ARIPIPRAZOLE
     Indication: Antipsychotic therapy
     Dosage: UNK
     Route: 065
  2. ARIPIPRAZOLE [Suspect]
     Active Substance: ARIPIPRAZOLE
     Indication: Intellectual disability
  3. ARIPIPRAZOLE [Suspect]
     Active Substance: ARIPIPRAZOLE
     Indication: Autism spectrum disorder
  4. LAMOTRIGINE [Interacting]
     Active Substance: LAMOTRIGINE
     Indication: Intellectual disability
     Dosage: UNK
     Route: 065
  5. MELPERONE [Interacting]
     Active Substance: MELPERONE
     Indication: Intellectual disability
     Dosage: UNK
     Route: 065
  6. TIAPRIDE [Interacting]
     Active Substance: TIAPRIDE
     Indication: Intellectual disability
     Dosage: UNK
     Route: 065
  7. ZUCLOPENTHIXOL [Interacting]
     Active Substance: ZUCLOPENTHIXOL
     Indication: Intellectual disability
     Dosage: UNK
     Route: 065

REACTIONS (15)
  - Aplastic anaemia [Unknown]
  - Drug interaction [Unknown]
  - Extrapyramidal disorder [Unknown]
  - Off label use [Unknown]
  - Akathisia [Unknown]
  - Akinesia [Unknown]
  - Chills [Unknown]
  - Gait disturbance [Unknown]
  - Medication error [Unknown]
  - Muscle spasms [Unknown]
  - Myoclonus [Unknown]
  - Tremor [Unknown]
  - Product use in unapproved indication [Unknown]
  - Tongue spasm [Unknown]
  - Product use issue [Unknown]
